FAERS Safety Report 6046294-0 (Version None)
Quarter: 2009Q1

REPORT INFORMATION
  Report Type: 
  Country: None (occurrence: None)
  Receive Date: 20090121
  Receipt Date: 20090121
  Transmission Date: 20090719
  Serious: Yes (Life-Threatening, Hospitalization, Disabling, Other)
  Sender: FDA-Public Use
  Company Number: None

PATIENT
  Age: 60 Year
  Sex: Female
  Weight: 68.0396 kg

DRUGS (2)
  1. KLONOPIN [Suspect]
     Indication: ANXIETY
     Dosage: 2 MG DAILY
     Dates: start: 20051001, end: 20061001
  2. AMBIEN [Suspect]
     Dosage: DAILY

REACTIONS (1)
  - DRUG WITHDRAWAL SYNDROME [None]
